FAERS Safety Report 11367864 (Version 1)
Quarter: 2015Q3

REPORT INFORMATION
  Report Type: Spontaneous
  Country: US (occurrence: US)
  Receive Date: 20150811
  Receipt Date: 20150811
  Transmission Date: 20151125
  Serious: No
  Sender: FDA-Public Use
  Company Number: US-ELI_LILLY_AND_COMPANY-US201210008056

PATIENT
  Sex: Female

DRUGS (1)
  1. AXIRON [Suspect]
     Active Substance: TESTOSTERONE
     Dosage: UNK (HUSBAND^S DOSE), UNKNOWN
     Route: 061

REACTIONS (5)
  - Eye swelling [Unknown]
  - Lacrimation increased [Unknown]
  - Eye pruritus [Unknown]
  - Hypersensitivity [Unknown]
  - Mucous membrane disorder [Unknown]
